FAERS Safety Report 11151443 (Version 1)
Quarter: 2015Q2

REPORT INFORMATION
  Report Type: Spontaneous
  Country: FR (occurrence: FR)
  Receive Date: 20150601
  Receipt Date: 20150601
  Transmission Date: 20150821
  Serious: Yes (Hospitalization)
  Sender: FDA-Public Use
  Company Number: FR-PFIZER INC-2015179285

PATIENT
  Age: 74 Year
  Sex: Male

DRUGS (14)
  1. MIFLONIL [Concomitant]
     Active Substance: BUDESONIDE
     Route: 055
  2. AERIUS [Concomitant]
     Active Substance: DESLORATADINE
     Route: 048
  3. FORADIL [Concomitant]
     Active Substance: FORMOTEROL FUMARATE
     Route: 055
  4. SPIRIVA [Concomitant]
     Active Substance: TIOTROPIUM BROMIDE MONOHYDRATE
     Route: 055
  5. TAZOCILLINE [Suspect]
     Active Substance: PIPERACILLIN SODIUM\TAZOBACTAM SODIUM
     Indication: MEDIASTINITIS
     Dosage: UNK
     Route: 041
     Dates: start: 20130110, end: 20130203
  6. TIBERAL [Concomitant]
     Active Substance: ORNIDAZOLE
     Dosage: UNK
     Route: 042
     Dates: start: 20130116, end: 20130131
  7. MICARDIS [Concomitant]
     Active Substance: TELMISARTAN
     Route: 048
  8. VANCOMYCIN [Suspect]
     Active Substance: VANCOMYCIN
     Indication: PYREXIA
     Dosage: UNK
     Route: 041
     Dates: start: 20130116, end: 20130131
  9. TAZOCILLINE [Suspect]
     Active Substance: PIPERACILLIN SODIUM\TAZOBACTAM SODIUM
     Indication: PNEUMONIA
  10. AMIKACIN [Concomitant]
     Active Substance: AMIKACIN
     Indication: PNEUMONIA
  11. LASILIX [Concomitant]
     Active Substance: FUROSEMIDE
     Indication: FLUID OVERLOAD
     Dosage: UNK
     Route: 048
     Dates: start: 20130117, end: 20130204
  12. TAHOR [Concomitant]
     Active Substance: ATORVASTATIN CALCIUM
     Route: 048
  13. AMIKACIN [Concomitant]
     Active Substance: AMIKACIN
     Indication: MEDIASTINITIS
     Dosage: UNK
     Route: 041
     Dates: start: 20130110
  14. CORDARONE [Concomitant]
     Active Substance: AMIODARONE HYDROCHLORIDE
     Indication: ATRIAL FIBRILLATION
     Dosage: UNK
     Dates: start: 20130111

REACTIONS (1)
  - Drug reaction with eosinophilia and systemic symptoms [Recovered/Resolved with Sequelae]

NARRATIVE: CASE EVENT DATE: 20130204
